FAERS Safety Report 6981890-5 (Version None)
Quarter: 2010Q3

REPORT INFORMATION
  Report Type: 
  Country: None (occurrence: None)
  Receive Date: 20100914
  Receipt Date: 20091013
  Transmission Date: 20110219
  Serious: No
  Sender: FDA-Public Use
  Company Number: US-PFIZER INC-2009282995

PATIENT
  Sex: Female
  Weight: 67.1 kg

DRUGS (1)
  1. LYRICA [Suspect]
     Indication: CONVULSION
     Dosage: 50 MG, SINGLE
     Dates: start: 20091013, end: 20091013

REACTIONS (4)
  - EUPHORIC MOOD [None]
  - PALPITATIONS [None]
  - RASH MACULAR [None]
  - VISION BLURRED [None]
